FAERS Safety Report 9148520 (Version 1)
Quarter: 2013Q1

REPORT INFORMATION
  Report Type: Spontaneous
  Country: GB (occurrence: None)
  Receive Date: 20130204
  Receipt Date: 20130204
  Transmission Date: 20140127
  Serious: Yes (Death, Hospitalization)
  Sender: FDA-Public Use
  Company Number: 167-00000-13010632

PATIENT
  Age: 58 Year
  Sex: Male

DRUGS (15)
  1. REVLIMID [Suspect]
     Indication: PLASMA CELL MYELOMA
     Dosage: 25 MG, 1 IN 1 D, PO
     Route: 048
     Dates: start: 20120423
  2. DEXAMETHASONE [Suspect]
     Indication: PLASMA CELL MYELOMA
     Route: 048
     Dates: start: 20120423, end: 20121126
  3. METFORMIN(METFORMIN)(UNKNOWN) [Concomitant]
  4. SODIUM CLODRONATE(CLODRONATE DISODIUM)(UNKNOWN) [Concomitant]
  5. SIMVASTATIN(SIMVASTATIN)(UNKNOWN) [Concomitant]
  6. PREGABALIN(PREGABALIN)(UNKNOWN) [Concomitant]
  7. NOVOMIX(INSULIN ASPART)(UNKNOWN) [Concomitant]
  8. DOCUSATE SODIUM(DOCUSATE SODIUM) (UNKNOWN) [Concomitant]
  9. PARACETAMOL (PARACETAMOL) (UNKNOWN) [Concomitant]
  10. METACLOPRAMIDE (METOCLOPRAMIDE HYDROCHLORIDE) (UNKNOWN) [Concomitant]
  11. ACICLOVIR (ACICLOVIR) (UNKNOWN) [Concomitant]
  12. LANSOPRAZOLE(LANSOPRAZOLE)(UNKNOWN) [Concomitant]
  13. CO-TRIMOXAZOLE(BACTRIM)(UNKNOWN) [Concomitant]
  14. ASPIRINE(ACETYLSALICYLIC ACID)(UNKNOWN) [Concomitant]
  15. ALLOPURINOL(ALLOPURINOL)(UNKNOWN) [Concomitant]

REACTIONS (1)
  - Subdural haematoma [None]
